FAERS Safety Report 15492857 (Version 7)
Quarter: 2019Q1

REPORT INFORMATION
  Report Type: Spontaneous
  Country: CA (occurrence: CA)
  Receive Date: 20181012
  Receipt Date: 20190328
  Transmission Date: 20190417
  Serious: Yes (Other)
  Sender: FDA-Public Use
  Company Number: CA-CELLTRION INC.-2018CA022019

PATIENT

DRUGS (15)
  1. INFLECTRA [Suspect]
     Active Substance: INFLIXIMAB-DYYB
     Dosage: 10 MG/KG, 0,2,6 WEEKS,THEN EVERY 8 WEEKS;
     Route: 042
     Dates: start: 20180928
  2. VITAMIN B12 (SANDOZ) [Concomitant]
  3. PANTOLOC [PANTOPRAZOLE] [Concomitant]
     Active Substance: PANTOPRAZOLE SODIUM
     Dosage: UNK
  4. INFLECTRA [Suspect]
     Active Substance: INFLIXIMAB-DYYB
     Dosage: 800 MG, EVERY 6 WEEKS
     Route: 042
     Dates: start: 20190315
  5. LYRICA [Concomitant]
     Active Substance: PREGABALIN
     Dosage: UNK
  6. PREDNISONE. [Concomitant]
     Active Substance: PREDNISONE
     Dosage: 50 MG, ONCE DAILY
  7. INFLECTRA [Suspect]
     Active Substance: INFLIXIMAB-DYYB
     Dosage: 800 MG, EVERY 6 WEEKS
     Route: 042
     Dates: start: 20190215
  8. INFLECTRA [Suspect]
     Active Substance: INFLIXIMAB-DYYB
     Indication: CROHN^S DISEASE
     Dosage: 10 MG/KG, 0,2,6 WEEKS,THEN EVERY 8 WEEKS;
     Route: 042
     Dates: start: 20180928
  9. HYDRAZIDE [HYDROCHLOROTHIAZIDE] [Concomitant]
  10. INFLECTRA [Suspect]
     Active Substance: INFLIXIMAB-DYYB
     Dosage: 800 MG, EVERY 6 WEEKS
     Route: 042
     Dates: start: 20190215
  11. NOVO-LOPERAMIDE [Concomitant]
     Active Substance: LOPERAMIDE HYDROCHLORIDE
     Dosage: UNK
  12. DULOXETINE. [Concomitant]
     Active Substance: DULOXETINE
  13. VITAMINS NOS [Concomitant]
     Active Substance: VITAMINS
     Dosage: UNK
  14. TYLENOL WITH CODEINE [Concomitant]
     Active Substance: ACETAMINOPHEN\CODEINE PHOSPHATE
     Dosage: UNK
  15. CELECOXIB SANDOZ [Concomitant]
     Active Substance: CELECOXIB

REACTIONS (8)
  - Condition aggravated [Recovering/Resolving]
  - Inappropriate schedule of product administration [Unknown]
  - Off label use [Unknown]
  - Respiratory rate decreased [Unknown]
  - Blood pressure fluctuation [Unknown]
  - Urticaria [Unknown]
  - Gastrointestinal obstruction [Unknown]
  - Gastrointestinal stenosis [Unknown]

NARRATIVE: CASE EVENT DATE: 20180928
